FAERS Safety Report 6391105-7 (Version None)
Quarter: 2009Q4

REPORT INFORMATION
  Report Type: 
  Country: None (occurrence: None)
  Receive Date: 20091006
  Receipt Date: 20091006
  Transmission Date: 20100525
  Serious: Yes (Other)
  Sender: FDA-Public Use
  Company Number: None

PATIENT
  Age: 54 Year
  Sex: Female
  Weight: 58.9676 kg

DRUGS (1)
  1. OXCARBAZEPINE [Suspect]
     Dosage: 300MG 2TABS BID PO
     Route: 048
     Dates: start: 20081001, end: 20081118

REACTIONS (3)
  - PARAESTHESIA [None]
  - PARTIAL SEIZURES [None]
  - PRODUCT SUBSTITUTION ISSUE [None]
